FAERS Safety Report 7208607-3 (Version None)
Quarter: 2010Q4

REPORT INFORMATION
  Report Type: 
  Country: None (occurrence: None)
  Receive Date: 20101222
  Receipt Date: 20101207
  Transmission Date: 20110411
  Serious: Yes (Hospitalization)
  Sender: FDA-Public Use
  Company Number: AUR-APL-2010-03067

PATIENT
  Age: 25 Year
  Sex: Male

DRUGS (3)
  1. CLINDAMYCIN [Suspect]
     Indication: PERITONSILLAR ABSCESS
  2. CLINDAMYCIN [Suspect]
     Indication: PHARYNGITIS STREPTOCOCCAL
  3. METHYLPREDNISOLONE [Concomitant]

REACTIONS (1)
  - DRUG RASH WITH EOSINOPHILIA AND SYSTEMIC SYMPTOMS [None]
